FAERS Safety Report 16355164 (Version 1)
Quarter: 2019Q2

REPORT INFORMATION
  Report Type: Report from Study
  Country: US (occurrence: US)
  Receive Date: 20190524
  Receipt Date: 20190524
  Transmission Date: 20190711
  Serious: Yes (Death, Other)
  Sender: FDA-Public Use
  Company Number: US-JAZZ-2019-US-003350

PATIENT
  Sex: Female

DRUGS (2)
  1. VYXEOS [Suspect]
     Active Substance: CYTARABINE\DAUNORUBICIN
     Dosage: 29/65 MG/M2 DAYS 1 AND 3 (CONSOLIDATION)
     Route: 042
     Dates: end: 201811
  2. VYXEOS [Suspect]
     Active Substance: CYTARABINE\DAUNORUBICIN
     Indication: ACUTE MYELOID LEUKAEMIA
     Dosage: 44/100 MG/M2, DAYS 1 AND 3 (INDUCTION)
     Route: 042
     Dates: start: 201809

REACTIONS (2)
  - Respiratory tract infection [Fatal]
  - Intentional dose omission [Unknown]

NARRATIVE: CASE EVENT DATE: 201809
